FAERS Safety Report 7699137-3 (Version None)
Quarter: 2011Q3

REPORT INFORMATION
  Report Type: 
  Country: None (occurrence: None)
  Receive Date: 20110818
  Receipt Date: 20110818
  Transmission Date: 20111222
  Serious: No
  Sender: FDA-Public Use
  Company Number: None

PATIENT
  Age: 77 Year
  Sex: Female

DRUGS (12)
  1. FERROUS SULFATE TAB [Concomitant]
  2. CALCIUM CITRATE WITH VITAMIN B [Concomitant]
  3. OMEGA-3, 6 [Concomitant]
  4. LESCOL XL [Concomitant]
  5. HYDROCHLOROTHIAZIDE [Concomitant]
  6. AMLODIPINE [Concomitant]
  7. MULTI-VITAMIN WITH IRON [Concomitant]
  8. COZAAR [Concomitant]
  9. ASCORBIC ACID [Concomitant]
  10. OMEGA-3 FATTY ACIDS [Concomitant]
  11. FLUVASTATIN [Suspect]
     Dates: end: 20090101
  12. SYNTHROID [Concomitant]

REACTIONS (22)
  - MUSCLE SPASMS [None]
  - DRY EYE [None]
  - MYALGIA [None]
  - CARDIAC MURMUR [None]
  - NASAL CONGESTION [None]
  - ANTINUCLEAR ANTIBODY POSITIVE [None]
  - CHROMATURIA [None]
  - HEPATITIS [None]
  - TONSILLAR DISORDER [None]
  - DIZZINESS [None]
  - BLOOD PRESSURE DIASTOLIC DECREASED [None]
  - SKIN HYPERPIGMENTATION [None]
  - LIVER INJURY [None]
  - BALANCE DISORDER [None]
  - FEELING ABNORMAL [None]
  - FATIGUE [None]
  - AUTOIMMUNE HEPATITIS [None]
  - SNEEZING [None]
  - NAUSEA [None]
  - ARTHRALGIA [None]
  - DECREASED APPETITE [None]
  - PRURITUS [None]
